FAERS Safety Report 10082361 (Version 1)
Quarter: 2014Q2

REPORT INFORMATION
  Report Type: Spontaneous
  Country: IT (occurrence: IT)
  Receive Date: 20140416
  Receipt Date: 20140416
  Transmission Date: 20141212
  Serious: Yes (Other)
  Sender: FDA-Public Use
  Company Number: PHHY2014IT044027

PATIENT
  Age: 65 Year
  Sex: Male

DRUGS (9)
  1. METFORMIN [Suspect]
     Indication: TYPE 1 DIABETES MELLITUS
     Dosage: 400 MG, QD
     Route: 048
     Dates: end: 20140317
  2. CAPRELSA [Suspect]
     Indication: BONE CANCER
     Dosage: 300 MG, QD
     Route: 048
     Dates: start: 20140128, end: 20140317
  3. CAPRELSA [Suspect]
     Indication: THYROIDITIS
     Dosage: 200 MG, UNK
  4. TRIATEC [Concomitant]
     Indication: HYPERTENSION
     Dosage: 5 MG, UNK
  5. GLIBOMET [Concomitant]
     Indication: TYPE 1 DIABETES MELLITUS
     Dosage: 1 DF, UNK
     Route: 048
  6. GLOCUBAY [Concomitant]
     Indication: TYPE 1 DIABETES MELLITUS
     Dosage: 50 MG, UNK
  7. IPSTYL [Concomitant]
     Dosage: 120 MG, UNK
  8. TIROSINT [Concomitant]
     Dosage: 150 UG, UNK
  9. LANTUS [Concomitant]
     Indication: TYPE 1 DIABETES MELLITUS
     Dosage: 22 DF, UNK

REACTIONS (2)
  - Renal failure [Recovering/Resolving]
  - Blood creatinine increased [Recovering/Resolving]
